FAERS Safety Report 20150306 (Version 1)
Quarter: 2021Q4

REPORT INFORMATION
  Report Type: Spontaneous
  Country: CN (occurrence: None)
  Receive Date: 20211206
  Receipt Date: 20211206
  Transmission Date: 20220303
  Serious: Yes (Hospitalization)
  Sender: FDA-Public Use
  Company Number: CN-ROCHE-2969228

PATIENT
  Age: 45 Year
  Sex: Female
  Weight: 56 kg

DRUGS (9)
  1. MABTHERA [Suspect]
     Active Substance: RITUXIMAB
     Indication: Diffuse large B-cell lymphoma stage IV
     Route: 041
     Dates: start: 20210727
  2. LENALIDOMIDE [Suspect]
     Active Substance: LENALIDOMIDE
     Indication: Diffuse large B-cell lymphoma stage IV
     Route: 048
     Dates: start: 20210728
  3. IMIPENEM AND CILASTATIN SODIUM [Suspect]
     Active Substance: CILASTATIN SODIUM\IMIPENEM
     Indication: Antibiotic therapy
     Route: 041
     Dates: start: 20210728
  4. ZANUBRUTINIB [Suspect]
     Active Substance: ZANUBRUTINIB
     Indication: Diffuse large B-cell lymphoma stage IV
     Route: 048
     Dates: start: 20210728
  5. OMEPRAZOLE SODIUM [Concomitant]
     Active Substance: OMEPRAZOLE SODIUM
     Indication: Gastrointestinal disorder
     Route: 041
     Dates: start: 20210806, end: 20210818
  6. REBAMIPIDE [Concomitant]
     Active Substance: REBAMIPIDE
     Indication: Gastrointestinal disorder prophylaxis
     Route: 048
     Dates: start: 20210727, end: 20210827
  7. PHOSPHOLIPID [Concomitant]
     Active Substance: PHOSPHOLIPID
     Route: 040
     Dates: start: 20210808
  8. GLUTATHIONE [Concomitant]
     Active Substance: GLUTATHIONE
     Route: 041
     Dates: start: 20210808
  9. BICYCLOL [Concomitant]
     Active Substance: BICYCLOL
     Dosage: AFTER MEALS
     Dates: start: 20210808

REACTIONS (1)
  - Hepatic enzyme increased [Recovering/Resolving]

NARRATIVE: CASE EVENT DATE: 20210807
